FAERS Safety Report 6961734-8 (Version None)
Quarter: 2010Q3

REPORT INFORMATION
  Report Type: 
  Country: None (occurrence: None)
  Receive Date: 20100901
  Receipt Date: 20100811
  Transmission Date: 20110219
  Serious: No
  Sender: FDA-Public Use
  Company Number: US-AMGEN-KDL430459

PATIENT
  Sex: Female

DRUGS (11)
  1. PROLIA [Suspect]
     Indication: OSTEOPOROSIS POSTMENOPAUSAL
     Dates: start: 20100809
  2. SPIRIVA [Concomitant]
  3. ALBUTEROL [Concomitant]
  4. ADVAIR DISKUS 100/50 [Concomitant]
  5. ALBUTEROL SULATE [Concomitant]
  6. SINGULAIR [Concomitant]
  7. ARTHROTEC [Concomitant]
  8. LOTREL [Concomitant]
  9. TRAMADOL HCL [Concomitant]
  10. FLUTICASONE PROPIONATE [Concomitant]
  11. VITAMINS [Concomitant]

REACTIONS (1)
  - DIARRHOEA [None]
